FAERS Safety Report 5325937-0 (Version None)
Quarter: 2007Q2

REPORT INFORMATION
  Report Type: 
  Country: None (occurrence: None)
  Receive Date: 20070514
  Receipt Date: 20070514
  Transmission Date: 20071010
  Serious: Yes (Hospitalization)
  Sender: FDA-Public Use
  Company Number: None

PATIENT
  Sex: Female
  Weight: 98 kg

DRUGS (1)
  1. PROTONIX [Suspect]
     Dosage: 40 OT ORAL
     Route: 048
     Dates: start: 20070510

REACTIONS (2)
  - MENTAL STATUS CHANGES [None]
  - PYREXIA [None]
